FAERS Safety Report 10611009 (Version 2)
Quarter: 2014Q4

REPORT INFORMATION
  Report Type: Spontaneous
  Country: US (occurrence: US)
  Receive Date: 20141126
  Receipt Date: 20141126
  Transmission Date: 20150529
  Serious: No
  Sender: FDA-Public Use
  Company Number: US-MALLINCKRODT-T201403655

PATIENT
  Sex: Male

DRUGS (2)
  1. GABLOFEN [Suspect]
     Active Substance: BACLOFEN
     Indication: MUSCLE SPASTICITY
     Dosage: 140.20 MCG/DAY
     Route: 037
     Dates: start: 20140425
  2. ZANAFLEX [Concomitant]
     Active Substance: TIZANIDINE HYDROCHLORIDE

REACTIONS (7)
  - Fall [Unknown]
  - Hypertonia [Recovering/Resolving]
  - Device breakage [Recovered/Resolved]
  - Pain [Recovering/Resolving]
  - Mobility decreased [Recovering/Resolving]
  - Headache [Recovering/Resolving]
  - Musculoskeletal disorder [Recovering/Resolving]
